FAERS Safety Report 9492361 (Version 2)
Quarter: 2013Q3

REPORT INFORMATION
  Report Type: Spontaneous
  Country: NO (occurrence: NO)
  Receive Date: 20130830
  Receipt Date: 20130925
  Transmission Date: 20140515
  Serious: Yes (Hospitalization)
  Sender: FDA-Public Use
  Company Number: NO-VERTEX PHARMACEUTICALS INC-2013-009176

PATIENT
  Age: 59 Year
  Sex: Male

DRUGS (5)
  1. INCIVO [Suspect]
     Indication: FIBROSIS
     Dosage: 8 TABLETS
     Route: 065
     Dates: start: 20130820
  2. INCIVO [Suspect]
     Indication: HEPATITIS C
  3. INCIVO [Suspect]
     Indication: FIBROSIS
  4. PEGASYS [Suspect]
     Indication: PRODUCT USED FOR UNKNOWN INDICATION
     Dosage: 180 ?G, QW
     Route: 065
  5. COPEGUS [Suspect]
     Indication: PRODUCT USED FOR UNKNOWN INDICATION
     Dosage: 1200 MG, QD
     Route: 065

REACTIONS (6)
  - Overdose [Recovered/Resolved]
  - Dehydration [Recovered/Resolved]
  - Blood creatinine increased [Not Recovered/Not Resolved]
  - Haemoglobin increased [Recovered/Resolved]
  - Nausea [Recovered/Resolved]
  - Blood bilirubin increased [Recovered/Resolved]
